FAERS Safety Report 5993402-3 (Version None)
Quarter: 2008Q4

REPORT INFORMATION
  Report Type: 
  Country: None (occurrence: None)
  Receive Date: 20081212
  Receipt Date: 20081201
  Transmission Date: 20090506
  Serious: Yes (Hospitalization)
  Sender: FDA-Public Use
  Company Number: GB-TEVA-181934ISR

PATIENT
  Age: 54 Year
  Sex: Male

DRUGS (3)
  1. FLUOROURACIL [Suspect]
     Indication: COLON CANCER
  2. OXALIPLATIN [Concomitant]
  3. FOLINIC ACID [Concomitant]
     Indication: COLON CANCER

REACTIONS (7)
  - DILATATION VENTRICULAR [None]
  - DYSPNOEA [None]
  - HYPERHIDROSIS [None]
  - LEFT VENTRICULAR DYSFUNCTION [None]
  - NAUSEA [None]
  - TORSADE DE POINTES [None]
  - VENTRICULAR FIBRILLATION [None]
